FAERS Safety Report 5624827-3 (Version None)
Quarter: 2008Q1

REPORT INFORMATION
  Report Type: 
  Country: None (occurrence: None)
  Receive Date: 20080213
  Receipt Date: 20080206
  Transmission Date: 20080703
  Serious: Yes (Other)
  Sender: FDA-Public Use
  Company Number: FR-AVENTIS-200810063FR

PATIENT
  Age: 78 Year
  Sex: Female
  Weight: 57 kg

DRUGS (9)
  1. ARAVA [Suspect]
     Route: 048
     Dates: start: 20070914, end: 20070101
  2. ARAVA [Suspect]
     Route: 048
     Dates: start: 20070101, end: 20080113
  3. ARAVA [Suspect]
     Route: 048
     Dates: start: 20070101, end: 20080113
  4. ARAVA [Suspect]
     Route: 048
     Dates: start: 20080114
  5. LOXEN [Concomitant]
     Route: 048
  6. HYTACAND [Concomitant]
     Route: 048
  7. EUPRESSYL                          /00631801/ [Concomitant]
     Route: 048
  8. LEVOTHYROXINE SODIUM [Concomitant]
     Route: 048
  9. DRUGS AFFECTING MINERALIZATION [Concomitant]
     Indication: OSTEOPOROSIS
     Route: 048

REACTIONS (3)
  - GASTROINTESTINAL DISORDER [None]
  - VISUAL ACUITY REDUCED [None]
  - VITREOUS HAEMORRHAGE [None]
